FAERS Safety Report 11222659 (Version 2)
Quarter: 2015Q3

REPORT INFORMATION
  Report Type: Report from Study
  Country: US (occurrence: US)
  Receive Date: 20150626
  Receipt Date: 20150902
  Transmission Date: 20151125
  Serious: Yes (Hospitalization, Other)
  Sender: FDA-Public Use
  Company Number: US-VERTEX PHARMACEUTICALS-2015-002043

PATIENT
  Age: 13 Year
  Sex: Female
  Weight: 77 kg

DRUGS (1)
  1. KALYDECO [Suspect]
     Active Substance: IVACAFTOR
     Indication: CYSTIC FIBROSIS
     Dosage: 150 MG, BID
     Route: 048
     Dates: start: 20120814, end: 20150819

REACTIONS (7)
  - Weight increased [Unknown]
  - Pancreatitis [Unknown]
  - Abdominal distension [Unknown]
  - Weight decreased [Unknown]
  - Urinary tract infection [Unknown]
  - Renal disorder [Unknown]
  - Abdominal pain upper [Unknown]

NARRATIVE: CASE EVENT DATE: 2012
